FAERS Safety Report 13114370 (Version 2)
Quarter: 2017Q1

REPORT INFORMATION
  Report Type: Spontaneous
  Country: US (occurrence: US)
  Receive Date: 20170113
  Receipt Date: 20170327
  Transmission Date: 20170428
  Serious: No
  Sender: FDA-Public Use
  Company Number: US-PFIZER INC-2017015104

PATIENT
  Age: 80 Year
  Sex: Female
  Weight: 64 kg

DRUGS (7)
  1. TRAMADOL. [Concomitant]
     Active Substance: TRAMADOL
     Dosage: 50 MG, 2X/DAY [ONE AT EVERY MORNING- BEFORE BEDTIME]
  2. LYRICA [Suspect]
     Active Substance: PREGABALIN
     Indication: ARTHRITIS
     Dosage: 50 MG, 1X/DAY
     Dates: start: 20151010
  3. CRESTOR [Concomitant]
     Active Substance: ROSUVASTATIN CALCIUM
     Dosage: 10 MG, 1X/DAY (ONCE AT NIGHT)
     Dates: start: 201612, end: 201701
  4. LYRICA [Suspect]
     Active Substance: PREGABALIN
     Indication: PAIN IN EXTREMITY
     Dosage: 50 MG, 2X/DAY
     Dates: start: 201609
  5. LYRICA [Suspect]
     Active Substance: PREGABALIN
     Indication: NERVE INJURY
     Dosage: UNK
  6. LYRICA [Suspect]
     Active Substance: PREGABALIN
     Dosage: EVERY OTHER NIGHT
     Dates: start: 201611
  7. LYRICA [Suspect]
     Active Substance: PREGABALIN
     Dosage: EVERY 2 NIGHTS
     Dates: end: 20170108

REACTIONS (9)
  - Decreased interest [Unknown]
  - Depressed mood [Recovered/Resolved]
  - Paraesthesia [Not Recovered/Not Resolved]
  - Pain [Unknown]
  - Drug prescribing error [Unknown]
  - Nerve compression [Not Recovered/Not Resolved]
  - Intentional product use issue [Recovered/Resolved]
  - Crying [Recovered/Resolved]
  - Emotional disorder [Unknown]

NARRATIVE: CASE EVENT DATE: 201611
